FAERS Safety Report 17813933 (Version 1)
Quarter: 2020Q2

REPORT INFORMATION
  Report Type: Report from Study
  Country: ZA (occurrence: ZA)
  Receive Date: 20200521
  Receipt Date: 20200521
  Transmission Date: 20200714
  Serious: Yes (Other)
  Sender: FDA-Public Use
  Company Number: ZA-STI PHARMA LLC-2084083

PATIENT
  Age: 50 Year
  Sex: Male

DRUGS (8)
  1. DELAMANID [Suspect]
     Active Substance: DELAMANID
     Route: 048
     Dates: start: 20180910
  2. LINEZOLID. [Concomitant]
     Active Substance: LINEZOLID
     Dates: start: 20180803
  3. CLOFAZIMINE [Suspect]
     Active Substance: CLOFAZIMINE
  4. ETHAMBUTOL HYDROCHLORIDE. [Suspect]
     Active Substance: ETHAMBUTOL HYDROCHLORIDE
     Indication: TUBERCULOSIS
     Route: 048
     Dates: start: 20180803
  5. PYAZINAMIDE [Suspect]
     Active Substance: PYRAZINAMIDE
     Route: 048
     Dates: start: 20180803, end: 20181010
  6. BEDAQUILINE [Suspect]
     Active Substance: BEDAQUILINE
     Route: 048
     Dates: start: 20180803
  7. TENOFOVIR DISOPROXIL FUMARATE. [Concomitant]
     Active Substance: TENOFOVIR DISOPROXIL FUMARATE
  8. AMINOSALICYLIC ACID [Suspect]
     Active Substance: AMINOSALICYLIC ACID
     Route: 048
     Dates: start: 20180803

REACTIONS (1)
  - Hepatic enzyme increased [None]

NARRATIVE: CASE EVENT DATE: 20181005
